FAERS Safety Report 5989917-4 (Version None)
Quarter: 2008Q4

REPORT INFORMATION
  Report Type: 
  Country: None (occurrence: None)
  Receive Date: 20081210
  Receipt Date: 20081128
  Transmission Date: 20090506
  Serious: Yes (Other)
  Sender: FDA-Public Use
  Company Number: 107#03#2008-06032

PATIENT
  Age: 51 Year
  Sex: Female

DRUGS (9)
  1. MIRTAZAPINE [Suspect]
     Indication: DEPRESSION
     Dosage: 15 MG, ORAL
     Route: 048
     Dates: start: 20080923, end: 20081009
  2. ARTHROTEC [Concomitant]
  3. CALCICHEW (CALCIUM CARBONATE) [Concomitant]
  4. MOVICOL (MACROGOL 3350, POLYETHYLENE GLYCOL 3350, POTASSIUM CHLORIDE, [Concomitant]
  5. NICORETTE [Concomitant]
  6. ACETAMINOPHEN [Concomitant]
  7. SERTRALINE [Concomitant]
  8. SOLIFENACIN (SOLIFENACIN) [Concomitant]
  9. ZOPICLONE (ZOPICLONE) [Concomitant]

REACTIONS (7)
  - ABDOMINAL DISTENSION [None]
  - GINGIVAL PAIN [None]
  - GLOSSODYNIA [None]
  - HYPERSENSITIVITY [None]
  - INFLUENZA LIKE ILLNESS [None]
  - OEDEMA PERIPHERAL [None]
  - TEMPERATURE INTOLERANCE [None]
